FAERS Safety Report 20113869 (Version 1)
Quarter: 2021Q4

REPORT INFORMATION
  Report Type: Spontaneous
  Country: US (occurrence: US)
  Receive Date: 20211125
  Receipt Date: 20211125
  Transmission Date: 20220303
  Serious: Yes (Other)
  Sender: FDA-Public Use
  Company Number: US-GLAXOSMITHKLINE-US2021GSK242176

PATIENT
  Sex: Female

DRUGS (16)
  1. ZANTAC [Suspect]
     Active Substance: RANITIDINE HYDROCHLORIDE
     Indication: Multiple allergies
     Dosage: 150 MG, QD
     Route: 065
     Dates: start: 201004, end: 201109
  2. ZANTAC [Suspect]
     Active Substance: RANITIDINE HYDROCHLORIDE
     Dosage: 300 MG, QD
     Route: 065
     Dates: start: 201004, end: 201109
  3. ZANTAC [Suspect]
     Active Substance: RANITIDINE HYDROCHLORIDE
     Indication: Multiple allergies
     Dosage: 150 MG, QD
     Route: 065
     Dates: start: 201004, end: 201109
  4. ZANTAC [Suspect]
     Active Substance: RANITIDINE HYDROCHLORIDE
     Dosage: 300 MG, QD
     Route: 065
     Dates: start: 201004, end: 201109
  5. RANITIDINE HYDROCHLORIDE [Suspect]
     Active Substance: RANITIDINE HYDROCHLORIDE
     Indication: Multiple allergies
     Dosage: 150 MG, QD
     Route: 065
     Dates: start: 201004, end: 201109
  6. RANITIDINE HYDROCHLORIDE [Suspect]
     Active Substance: RANITIDINE HYDROCHLORIDE
     Dosage: 300 MG, QD
     Route: 065
     Dates: start: 201004, end: 201109
  7. RANITIDINE HYDROCHLORIDE [Suspect]
     Active Substance: RANITIDINE HYDROCHLORIDE
     Indication: Multiple allergies
     Dosage: 150 MG, QD
     Route: 065
     Dates: start: 201004, end: 201109
  8. RANITIDINE HYDROCHLORIDE [Suspect]
     Active Substance: RANITIDINE HYDROCHLORIDE
     Dosage: 300 MG, QD
     Route: 065
     Dates: start: 201004, end: 201109
  9. RANITIDINE HYDROCHLORIDE [Suspect]
     Active Substance: RANITIDINE HYDROCHLORIDE
     Indication: Multiple allergies
     Dosage: OTHER, QD
     Route: 065
     Dates: start: 201004, end: 201109
  10. ZANTAC [Suspect]
     Active Substance: RANITIDINE HYDROCHLORIDE
     Indication: Multiple allergies
     Dosage: 150 MG, QD
     Route: 065
     Dates: start: 201004, end: 201109
  11. ZANTAC [Suspect]
     Active Substance: RANITIDINE HYDROCHLORIDE
     Dosage: 300 MG, QD
     Route: 065
     Dates: start: 201004, end: 201109
  12. RANITIDINE [Suspect]
     Active Substance: RANITIDINE
     Indication: Multiple allergies
     Dosage: 150 MG, QD
     Route: 065
     Dates: start: 201004, end: 201109
  13. RANITIDINE [Suspect]
     Active Substance: RANITIDINE
     Dosage: 300 MG, QD
     Route: 065
     Dates: start: 201004, end: 201109
  14. RANITIDINE [Suspect]
     Active Substance: RANITIDINE
     Indication: Multiple allergies
     Dosage: 150 MG, QD
     Route: 065
     Dates: start: 201004, end: 201109
  15. RANITIDINE [Suspect]
     Active Substance: RANITIDINE
     Dosage: 300 MG, QD
     Route: 065
     Dates: start: 201004, end: 201109
  16. ZANTAC [Suspect]
     Active Substance: RANITIDINE HYDROCHLORIDE
     Indication: Multiple allergies
     Dosage: OTHER, QD
     Route: 065
     Dates: start: 201004, end: 201109

REACTIONS (1)
  - Renal cancer [Unknown]
